FAERS Safety Report 9375213 (Version 2)
Quarter: 2013Q3

REPORT INFORMATION
  Report Type: Spontaneous
  Country: US (occurrence: US)
  Receive Date: 20130628
  Receipt Date: 20130801
  Transmission Date: 20140515
  Serious: Yes (Hospitalization)
  Sender: FDA-Public Use
  Company Number: US-GILEAD-2013-0077998

PATIENT
  Age: 16 Year
  Sex: Male

DRUGS (3)
  1. LETAIRIS [Suspect]
     Indication: VASCULAR RESISTANCE PULMONARY INCREASED
     Dosage: 10 MG, UNK
     Dates: start: 20110512
  2. LETAIRIS [Suspect]
     Indication: UNEVALUABLE EVENT
     Dates: start: 20090822
  3. REVATIO [Concomitant]

REACTIONS (4)
  - Respiratory tract infection viral [Recovered/Resolved]
  - Localised infection [Not Recovered/Not Resolved]
  - Heart rate increased [Recovered/Resolved]
  - Local swelling [Not Recovered/Not Resolved]
